FAERS Safety Report 8900843 (Version 1)
Quarter: 2012Q4

REPORT INFORMATION
  Report Type: 
  Country: FR (occurrence: FR)
  Receive Date: 20121109
  Receipt Date: 20121109
  Transmission Date: 20130627
  Serious: Yes (Other)
  Sender: FDA-Public Use
  Company Number: FR-ROCHE-1149108

PATIENT
  Sex: Female

DRUGS (4)
  1. SAQUINAVIR [Suspect]
     Indication: HIV INFECTION
     Route: 065
  2. RITONAVIR [Suspect]
     Indication: HIV INFECTION
     Route: 065
  3. ZIDOVUDINE [Suspect]
     Indication: HIV INFECTION
     Route: 065
  4. LAMIVUDINE [Suspect]
     Indication: HIV INFECTION
     Route: 065

REACTIONS (2)
  - Mitochondrial cytopathy [Unknown]
  - Exposure during pregnancy [Unknown]
